FAERS Safety Report 8913821 (Version 2)
Quarter: 2012Q4

REPORT INFORMATION
  Report Type: 
  Country: IN (occurrence: US)
  Receive Date: 20121119
  Receipt Date: 20121221
  Transmission Date: 20130627
  Serious: Yes (Other)
  Sender: FDA-Public Use
  Company Number: US-BAYER-2012-118141

PATIENT
  Age: 42 Year
  Sex: Female

DRUGS (1)
  1. CLIMARA [Suspect]
     Indication: HRT
     Dosage: 0.1 mg, UNK
     Route: 062
     Dates: start: 201208

REACTIONS (5)
  - Application site erosion [Not Recovered/Not Resolved]
  - Application site pruritus [Not Recovered/Not Resolved]
  - Application site rash [Not Recovered/Not Resolved]
  - Product adhesion issue [None]
  - Skin irritation [None]
